FAERS Safety Report 6238919-1 (Version None)
Quarter: 2009Q2

REPORT INFORMATION
  Report Type: 
  Country: None (occurrence: None)
  Receive Date: 20090622
  Receipt Date: 20090616
  Transmission Date: 20091009
  Serious: Yes (Hospitalization)
  Sender: FDA-Public Use
  Company Number: FR-PFIZER INC-2007065034

PATIENT
  Sex: Female
  Weight: 56 kg

DRUGS (12)
  1. SUNITINIB MALATE [Suspect]
     Indication: RENAL CANCER
     Dosage: 25 MG, 1X/DAY
     Route: 048
     Dates: start: 20060502
  2. LEVOTHYROX [Concomitant]
     Route: 048
     Dates: start: 20050923
  3. BISOPROLOL FUMARATE [Concomitant]
     Route: 048
     Dates: start: 20060722
  4. NEXIUM [Concomitant]
     Route: 048
     Dates: start: 20060722
  5. EFFERALGAN [Concomitant]
     Route: 048
     Dates: start: 20060722
  6. ONDANSETRON HCL [Concomitant]
     Route: 048
     Dates: start: 20060812
  7. ARESTAL [Concomitant]
     Route: 048
     Dates: start: 20070401
  8. ZANIDIP [Concomitant]
     Route: 048
     Dates: start: 20070401
  9. PRETERAX [Concomitant]
     Route: 048
     Dates: start: 20070525
  10. ALLOPURINOL [Concomitant]
     Route: 048
     Dates: start: 20070525
  11. GAVISCON [Concomitant]
     Route: 048
     Dates: start: 20070525
  12. EUPRESSYL [Concomitant]
     Route: 048
     Dates: start: 20070602

REACTIONS (1)
  - PROTEINURIA [None]
